FAERS Safety Report 5932974-1 (Version None)
Quarter: 2008Q4

REPORT INFORMATION
  Report Type: 
  Country: None (occurrence: None)
  Receive Date: 20081028
  Receipt Date: 20081013
  Transmission Date: 20090506
  Serious: Yes (Death)
  Sender: FDA-Public Use
  Company Number: US-GENENTECH-270438

PATIENT
  Age: 84 Year
  Sex: Male

DRUGS (1)
  1. RITUXAN [Suspect]
     Indication: HAIRY CELL LEUKAEMIA
     Dosage: 375 MG/M2, 1/WEEK
     Route: 042

REACTIONS (1)
  - SEPSIS [None]
